FAERS Safety Report 4546379-1 (Version None)
Quarter: 2005Q1

REPORT INFORMATION
  Report Type: 
  Country: None (occurrence: None)
  Receive Date: 20050103
  Receipt Date: 20040927
  Transmission Date: 20050727
  Serious: No
  Sender: FDA-Public Use
  Company Number: 2004UW18144

PATIENT
  Age: 26 Year
  Sex: Female

DRUGS (4)
  1. ATACAND [Suspect]
     Indication: HYPERTENSION
     Dosage: 8 MG DAILY PO
     Route: 048
     Dates: end: 20040820
  2. HYDROCHLOROTHIAZIDE [Suspect]
     Indication: HYPERTENSION
     Dosage: 25 MG DAILY PO
     Route: 048
     Dates: end: 20040820
  3. SYNTHROID [Suspect]
     Indication: HYPOTHYROIDISM
     Dosage: 88 UG DAILY
  4. MATERN [Concomitant]

REACTIONS (9)
  - DELAYED FONTANELLE CLOSURE [None]
  - DRUG EXPOSURE DURING PREGNANCY [None]
  - FOETAL DISORDER [None]
  - JAUNDICE NEONATAL [None]
  - KIDNEY ENLARGEMENT [None]
  - LABOUR INDUCTION [None]
  - NEONATAL DISORDER [None]
  - OLIGOHYDRAMNIOS [None]
  - PREGNANCY [None]
